FAERS Safety Report 12582214 (Version 1)
Quarter: 2016Q3

REPORT INFORMATION
  Report Type: Spontaneous
  Country: US (occurrence: None)
  Receive Date: 20160721
  Receipt Date: 20160721
  Transmission Date: 20161109
  Serious: Yes (Disabling)
  Sender: FDA-Public Use
  Company Number: None

PATIENT
  Age: 35 Year
  Sex: Female
  Weight: 63.96 kg

DRUGS (1)
  1. TYSABRI [Suspect]
     Active Substance: NATALIZUMAB
     Indication: MULTIPLE SCLEROSIS
     Dosage: ONCE EVERY 4WEEKS  INTO A VEIN
     Dates: start: 20160317

REACTIONS (3)
  - Mood swings [None]
  - Urinary tract infection [None]
  - Anger [None]

NARRATIVE: CASE EVENT DATE: 20160717
